FAERS Safety Report 21388908 (Version 1)
Quarter: 2022Q3

REPORT INFORMATION
  Report Type: Spontaneous
  Country: DE (occurrence: DE)
  Receive Date: 20220929
  Receipt Date: 20220929
  Transmission Date: 20221027
  Serious: Yes (Hospitalization, Other)
  Sender: FDA-Public Use
  Company Number: DE-ADRED-08030-01

PATIENT
  Age: 70 Year
  Sex: Female
  Weight: 105 kg

DRUGS (10)
  1. CITALOPRAM HYDROBROMIDE [Suspect]
     Active Substance: CITALOPRAM HYDROBROMIDE
     Indication: Product used for unknown indication
     Dosage: 40 MILLIGRAM (40 MG, 1-0-0-0, TABLETTEN)
     Route: 048
  2. OPIPRAMOL [Suspect]
     Active Substance: OPIPRAMOL
     Indication: Product used for unknown indication
     Dosage: 150 MILLIGRAM(150 MG, 0-0-0.333-0, TABLETTEN)
     Route: 048
  3. AMLODIPINE [Concomitant]
     Active Substance: AMLODIPINE BESYLATE
     Indication: Product used for unknown indication
     Dosage: 5 MILLIGRAM (5 MG, 1-0-1-0, TABLETTEN)
     Route: 048
  4. ASPIRIN [Concomitant]
     Active Substance: ASPIRIN
     Indication: Product used for unknown indication
     Dosage: 100 MILLIGRAM (100 MG, 1-0-0-0, TABLETTEN)
     Route: 048
  5. BECLOMETASONE;FENOTEROL [Concomitant]
     Indication: Product used for unknown indication
     Dosage: 100|6 ?G, 2-0-2-0, INHALATIONSPULVER
  6. CANDESARTAN [Concomitant]
     Active Substance: CANDESARTAN
     Indication: Product used for unknown indication
     Dosage: 32 MILLIGRAM (32 MG, 0-0-0.5-0, TABLETTEN)
     Route: 048
  7. DOXAZOSIN [Concomitant]
     Active Substance: DOXAZOSIN MESYLATE
     Indication: Product used for unknown indication
     Dosage: 2 MILLIGRAM (2 MG, 0-0-1-0, TABLETTEN)
     Route: 048
  8. RIVAROXABAN [Concomitant]
     Active Substance: RIVAROXABAN
     Indication: Product used for unknown indication
     Dosage: 2.5 MILLIGRAM (2.5 MG, 1-0-1-0, TABLETTEN)
     Route: 048
  9. ROSUVASTATIN [Concomitant]
     Active Substance: ROSUVASTATIN
     Indication: Product used for unknown indication
     Dosage: 20 MILLIGRAM (20 MG, 0-0-1-0, TABLETTEN)
     Route: 048
  10. TORSEMIDE [Concomitant]
     Active Substance: TORSEMIDE
     Indication: Product used for unknown indication
     Dosage: 10 MILLIGRAM (10 MG, NEED, TABLETS)
     Route: 048

REACTIONS (3)
  - Cerebral ischaemia [Unknown]
  - Labelled drug-drug interaction medication error [Unknown]
  - Hemiparesis [Unknown]

NARRATIVE: CASE EVENT DATE: 20210816
